FAERS Safety Report 7315185-7 (Version None)
Quarter: 2011Q1

REPORT INFORMATION
  Report Type: 
  Country: None (occurrence: None)
  Receive Date: 20110225
  Receipt Date: 20110222
  Transmission Date: 20110831
  Serious: Yes (Other)
  Sender: FDA-Public Use
  Company Number: JP-SANOFI-AVENTIS-2011SA004818

PATIENT
  Age: 64 Year
  Sex: Female
  Weight: 59 kg

DRUGS (7)
  1. TAXOTERE [Suspect]
     Indication: BREAST CANCER
     Route: 041
     Dates: start: 20101207, end: 20101207
  2. GLUCOSE [Concomitant]
     Route: 042
     Dates: start: 20101207, end: 20110125
  3. TAXOTERE [Suspect]
     Route: 041
     Dates: start: 20101228, end: 20101228
  4. TAXOTERE [Suspect]
     Route: 041
     Dates: start: 20110125, end: 20110125
  5. DEXAMETHASONE SODIUM PHOSPHATE [Concomitant]
     Route: 042
     Dates: start: 20101207, end: 20110125
  6. ENDOXAN [Concomitant]
     Indication: BREAST CANCER
     Route: 042
     Dates: start: 20101207, end: 20110125
  7. ALOXI [Concomitant]
     Route: 042
     Dates: start: 20101207, end: 20110125

REACTIONS (2)
  - CHOLECYSTITIS [None]
  - ABDOMINAL PAIN UPPER [None]
